FAERS Safety Report 7541827-7 (Version None)
Quarter: 2011Q2

REPORT INFORMATION
  Report Type: 
  Country: None (occurrence: None)
  Receive Date: 20110613
  Receipt Date: 20110602
  Transmission Date: 20111010
  Serious: Yes (Disabling)
  Sender: FDA-Public Use
  Company Number: JP-JNJFOC-20110601115

PATIENT
  Sex: Male

DRUGS (2)
  1. URIEF [Concomitant]
     Indication: PRODUCT USED FOR UNKNOWN INDICATION
     Dosage: 8 MG IN 1 DAY
     Route: 065
  2. LEVOFLOXACIN [Suspect]
     Indication: CYSTITIS NONINFECTIVE
     Route: 048
     Dates: start: 20110426, end: 20110430

REACTIONS (2)
  - NAUSEA [None]
  - DECREASED APPETITE [None]
